FAERS Safety Report 6507557-5 (Version None)
Quarter: 2009Q4

REPORT INFORMATION
  Report Type: 
  Country: None (occurrence: None)
  Receive Date: 20091221
  Receipt Date: 20091215
  Transmission Date: 20100525
  Serious: Yes (Life-Threatening, Hospitalization)
  Sender: FDA-Public Use
  Company Number: JP-BRISTOL-MYERS SQUIBB COMPANY-14680953

PATIENT
  Age: 55 Year
  Sex: Male
  Weight: 64 kg

DRUGS (8)
  1. ERBITUX [Suspect]
     Indication: COLON CANCER
     Route: 042
     Dates: start: 20090617, end: 20090617
  2. IRINOTECAN HCL [Concomitant]
     Indication: COLON CANCER
     Dosage: 28MAY09-03JUN09.
     Route: 042
     Dates: start: 20090617, end: 20090617
  3. VENA [Concomitant]
     Indication: PREMEDICATION
     Dosage: 5 DF- 5 TABS(AD)
     Route: 048
     Dates: start: 20090617, end: 20090617
  4. CALONAL [Concomitant]
     Indication: PREMEDICATION
     Dosage: POWDER FOR ORAL SOLUTION;CALONAL 20 PERCENT
     Route: 048
     Dates: start: 20090617, end: 20090617
  5. MEROPEN [Concomitant]
     Indication: PYREXIA
     Route: 065
     Dates: start: 20090621
  6. MEROPEN [Concomitant]
     Indication: MALAISE
     Route: 065
     Dates: start: 20090621
  7. SULPERAZON [Concomitant]
     Indication: PYREXIA
     Route: 065
  8. SULPERAZON [Concomitant]
     Indication: MALAISE
     Route: 065

REACTIONS (1)
  - MENINGITIS LISTERIA [None]
